FAERS Safety Report 4493051-2 (Version None)
Quarter: 2004Q4

REPORT INFORMATION
  Report Type: 
  Country: None (occurrence: None)
  Receive Date: 20041012
  Receipt Date: 20040908
  Transmission Date: 20050328
  Serious: No
  Sender: FDA-Public Use
  Company Number: 200409142

PATIENT
  Age: 6 Year
  Sex: Female

DRUGS (3)
  1. GAMMAR-P I.V. [Suspect]
     Dosage: IV
     Route: 042
     Dates: start: 20040803, end: 20040803
  2. GAMMAR-P I.V. [Suspect]
     Dosage: IV
     Route: 042
     Dates: start: 20040803, end: 20040803
  3. GAMMAR-P I.V. [Suspect]

REACTIONS (2)
  - ANTI-HBC ANTIBODY POSITIVE [None]
  - PHARMACEUTICAL PRODUCT COMPLAINT [None]
